FAERS Safety Report 13578283 (Version 1)
Quarter: 2017Q2

REPORT INFORMATION
  Report Type: Spontaneous
  Country: JP (occurrence: JP)
  Receive Date: 20170524
  Receipt Date: 20170524
  Transmission Date: 20170830
  Serious: Yes (Other)
  Sender: FDA-Public Use
  Company Number: JP-PFIZER INC-2017229578

PATIENT
  Age: 65 Year
  Sex: Female

DRUGS (3)
  1. ONETRAM [Suspect]
     Active Substance: TRAMADOL HYDROCHLORIDE
     Dosage: UNK
     Dates: start: 20170117
  2. CELECOX [Suspect]
     Active Substance: CELECOXIB
     Dosage: UNK
     Dates: start: 20161011
  3. CALONAL [Suspect]
     Active Substance: ACETAMINOPHEN
     Dosage: UNK
     Dates: start: 20170117

REACTIONS (1)
  - Wrist fracture [Unknown]
